FAERS Safety Report 25071076 (Version 1)
Quarter: 2025Q1

REPORT INFORMATION
  Report Type: Spontaneous
  Country: ES (occurrence: ES)
  Receive Date: 20250312
  Receipt Date: 20250312
  Transmission Date: 20250409
  Serious: Yes (Other)
  Sender: NOVARTIS
  Company Number: None

PATIENT
  Age: 60 Year
  Sex: Female

DRUGS (4)
  1. TAFINLAR [Suspect]
     Active Substance: DABRAFENIB MESYLATE
     Indication: Metastatic malignant melanoma
     Dosage: 150 MG, Q12H
     Route: 048
     Dates: start: 20241129
  2. MEKINIST [Suspect]
     Active Substance: TRAMETINIB DIMETHYL SULFOXIDE
     Indication: Metastatic malignant melanoma
     Dosage: 2 MG, Q24H (COMPRIMIDOS RECUBIERTOS CON PELICULA, 30 COMPRIMIDOS)
     Route: 048
     Dates: start: 20241129
  3. YERVOY [Suspect]
     Active Substance: IPILIMUMAB
     Indication: Metastatic malignant melanoma
     Dosage: 3 MG/KG, Q3W  (CONCENTRADO PARA SOLUCION PARA PERFUSION 1 VIAL DE 10 ML )
     Route: 042
     Dates: start: 20240809, end: 20240919
  4. OPDIVO [Suspect]
     Active Substance: NIVOLUMAB
     Indication: Metastatic malignant melanoma
     Dosage: 1 MG/KG, Q3W (10 MG/ML CONCENTRADO PARA SOLUCION PARA PERFUSION)
     Route: 042
     Dates: start: 20240809, end: 20240919

REACTIONS (1)
  - Immune-mediated arthritis [Recovering/Resolving]

NARRATIVE: CASE EVENT DATE: 20241215
